FAERS Safety Report 12888950 (Version 2)
Quarter: 2016Q4

REPORT INFORMATION
  Report Type: Other
  Country: FR (occurrence: FR)
  Receive Date: 20161025
  Receipt Date: 20161110
  Transmission Date: 20170207
  Serious: Yes (Hospitalization, Other)
  Sender: FDA-Public Use
  Company Number: TSR-2016-000052

PATIENT
  Age: 67 Year
  Sex: Female

DRUGS (1)
  1. ERGOMAR [Suspect]
     Active Substance: ERGOTAMINE TARTRATE
     Indication: MIGRAINE

REACTIONS (6)
  - Mitral valve incompetence [Recovering/Resolving]
  - Cardiac failure chronic [Recovering/Resolving]
  - Acute pulmonary oedema [Recovering/Resolving]
  - Mitral valve disease [Recovering/Resolving]
  - Pulmonary hypertension [Recovering/Resolving]
  - Echocardiogram abnormal [Recovering/Resolving]
